FAERS Safety Report 16333385 (Version 1)
Quarter: 2019Q2

REPORT INFORMATION
  Report Type: Spontaneous
  Country: US (occurrence: US)
  Receive Date: 20190520
  Receipt Date: 20190520
  Transmission Date: 20190711
  Serious: No
  Sender: FDA-Public Use
  Company Number: US-VANDA PHARMACEUTICALS, INC-2018ILOUS001698

PATIENT
  Age: 28 Year
  Sex: Male

DRUGS (2)
  1. FANAPT [Suspect]
     Active Substance: ILOPERIDONE
     Indication: SCHIZOPHRENIA
     Dosage: 5 MG, BID
     Route: 048
     Dates: start: 20150106, end: 20180314
  2. FANAPT [Suspect]
     Active Substance: ILOPERIDONE
     Dosage: 2 MG, QHS
     Route: 048
     Dates: start: 2018

REACTIONS (1)
  - Aggression [Recovered/Resolved]

NARRATIVE: CASE EVENT DATE: 20180709
